FAERS Safety Report 5423859-8 (Version None)
Quarter: 2007Q3

REPORT INFORMATION
  Report Type: 
  Country: None (occurrence: None)
  Receive Date: 20070823
  Receipt Date: 20070813
  Transmission Date: 20080115
  Serious: Yes (Hospitalization, Other)
  Sender: FDA-Public Use
  Company Number: PHBS2007AT11645

PATIENT
  Age: 61 Year
  Sex: Female
  Weight: 72 kg

DRUGS (25)
  1. CERTICAN [Suspect]
     Indication: RENAL TRANSPLANT
     Dosage: UNK, UNK
     Route: 048
     Dates: start: 20050530
  2. CERTICAN [Suspect]
     Dosage: 2.25 MG DAILY
     Route: 048
     Dates: start: 20050603
  3. CERTICAN [Suspect]
     Dosage: 3 MG DAILY
     Route: 048
     Dates: start: 20050606
  4. CERTICAN [Suspect]
     Dosage: 1.5 MG DAILY
     Route: 048
     Dates: start: 20050614
  5. CERTICAN [Suspect]
     Dosage: 0.75 MG DAILY
     Route: 048
     Dates: start: 20070627
  6. CERTICAN [Suspect]
     Dosage: 3 MG DAILY
     Route: 048
     Dates: start: 20050601
  7. MYFORTIC [Concomitant]
     Indication: RENAL TRANSPLANT
     Dosage: 720 MG DAILY
     Route: 065
     Dates: start: 20041103
  8. MYFORTIC [Concomitant]
     Dosage: 1440 MG DAILY
     Route: 065
     Dates: start: 20050518, end: 20050621
  9. MYFORTIC [Concomitant]
     Dosage: 1080 MG DAILY
     Route: 065
     Dates: start: 20050726
  10. MYFORTIC [Concomitant]
     Dosage: 1440 MG DAILY
     Route: 065
     Dates: start: 20050823
  11. CARVEDILOL [Concomitant]
  12. DIOVAN [Concomitant]
  13. ENAC [Concomitant]
  14. TRITTICO [Concomitant]
  15. LASIX [Concomitant]
  16. INSULIN [Concomitant]
  17. SANDIMMUNE [Suspect]
     Indication: RENAL TRANSPLANT
     Dosage: 75 MG DAILY
     Route: 065
     Dates: start: 20050518, end: 20050601
  18. SANDIMMUNE [Suspect]
     Route: 065
     Dates: end: 20050501
  19. PREDNISOLONE [Concomitant]
     Indication: RENAL TRANSPLANT
     Dosage: 5 TO 10 MG DAILY
     Route: 065
     Dates: start: 20050518, end: 20050628
  20. RABEPRAZOLE SODIUM [Concomitant]
  21. SODIUM BICARBONATE [Concomitant]
  22. EBRANTIL [Concomitant]
  23. LESCOL [Concomitant]
  24. ARANESP [Concomitant]
  25. TIOCTAN [Concomitant]

REACTIONS (16)
  - BLOOD CHOLESTEROL ABNORMAL [None]
  - BLOOD CREATININE ABNORMAL [None]
  - BLOOD CREATININE INCREASED [None]
  - BLOOD TRIGLYCERIDES ABNORMAL [None]
  - CHRONIC ALLOGRAFT NEPHROPATHY [None]
  - DIABETES MELLITUS INADEQUATE CONTROL [None]
  - HAEMOGLOBIN ABNORMAL [None]
  - NEPHROPATHY TOXIC [None]
  - OEDEMA PERIPHERAL [None]
  - PHARYNGITIS [None]
  - PLATELET COUNT ABNORMAL [None]
  - POLYNEUROPATHY IN MALIGNANT DISEASE [None]
  - PROTEINURIA [None]
  - RENAL IMPAIRMENT [None]
  - URINARY TRACT INFECTION [None]
  - VOMITING [None]
